FAERS Safety Report 9752076 (Version 3)
Quarter: 2015Q2

REPORT INFORMATION
  Report Type: Report from Study
  Country: DE (occurrence: DE)
  Receive Date: 20131213
  Receipt Date: 20150401
  Transmission Date: 20150821
  Serious: Yes (Hospitalization)
  Sender: FDA-Public Use
  Company Number: PHHO2013DE016018

PATIENT

DRUGS (8)
  1. DOXEPIN [Concomitant]
     Active Substance: DOXEPIN
     Dosage: 50 MG, (0-0-50 MG)
     Dates: start: 20100729
  2. KALIUM CHLORID [Concomitant]
     Dosage: (1-0-0)
     Dates: start: 20130606
  3. CARBAMAZEPIN [Concomitant]
     Active Substance: CARBAMAZEPINE
     Dosage: 600 MG, (0-0-600MG)
     Dates: start: 20100729
  4. RASILEZ [Suspect]
     Active Substance: ALISKIREN
     Indication: HYPERTENSION
     Dosage: 150 MG, QD (150X1)
     Dates: start: 20110221, end: 20131205
  5. OMEPRAZOL//OMEPRAZOLE [Concomitant]
     Dosage: 20 MG, (20-MG-0-0)
     Dates: start: 20100729
  6. PERAZIN//PERAZINE DIMALONATE [Concomitant]
     Dosage: 20 MG, (20-0-0)
     Dates: start: 20110712
  7. RASILEZ [Suspect]
     Active Substance: ALISKIREN
     Indication: PROTEINURIA
  8. EVEROLIMUS [Suspect]
     Active Substance: EVEROLIMUS
     Indication: TUBEROUS SCLEROSIS
     Dosage: UNK
     Route: 048
     Dates: start: 20100810

REACTIONS (1)
  - Syncope [Recovered/Resolved]

NARRATIVE: CASE EVENT DATE: 20131127
